FAERS Safety Report 4311270-2 (Version None)
Quarter: 2004Q1

REPORT INFORMATION
  Report Type: 
  Country: None (occurrence: None)
  Receive Date: 20040302
  Receipt Date: 20031103
  Transmission Date: 20041129
  Serious: Yes (Hospitalization)
  Sender: FDA-Public Use
  Company Number: BDI-005585

PATIENT
  Age: 17 Year
  Sex: Male

DRUGS (2)
  1. IOPAMIDOL [Suspect]
     Indication: ABDOMINAL PAIN LOWER
     Dosage: 65 ML ONCE IV
     Dates: start: 20030428, end: 20030428
  2. IOPAMIDOL [Suspect]
     Indication: COMPUTERISED TOMOGRAM
     Dosage: 65 ML ONCE IV
     Dates: start: 20030428, end: 20030428

REACTIONS (4)
  - LACRIMATION INCREASED [None]
  - NASAL CONGESTION [None]
  - PRURITUS [None]
  - SWELLING FACE [None]
